FAERS Safety Report 7162320-X (Version None)
Quarter: 2010Q4

REPORT INFORMATION
  Report Type: 
  Country: None (occurrence: None)
  Receive Date: 20101215
  Receipt Date: 20091005
  Transmission Date: 20110411
  Serious: Yes (Other)
  Sender: FDA-Public Use
  Company Number: US-PFIZER INC-2009263352

PATIENT
  Sex: Female
  Weight: 103.86 kg

DRUGS (10)
  1. LYRICA [Suspect]
     Indication: FIBROMYALGIA
     Dosage: 50 MG, 4X/DAY
     Route: 048
     Dates: start: 20080201
  2. DIOVAN [Concomitant]
     Dosage: UNK
  3. METFORMIN [Concomitant]
     Indication: GLUCOSE TOLERANCE IMPAIRED
     Dosage: UNK
  4. NEURONTIN [Concomitant]
     Indication: NEURALGIA
     Dosage: 300 MG, 2X/DAY
  5. TRICOR [Concomitant]
     Indication: BLOOD CHOLESTEROL INCREASED
     Dosage: UNK
  6. LIBRAX [Concomitant]
     Dosage: UNK
  7. SOMA [Concomitant]
     Indication: PAIN
     Dosage: UNK
  8. HYDROMORPHONE [Concomitant]
     Dosage: 2 MG, 4X/DAY
  9. LACTOBACILLUS [Concomitant]
     Dosage: UNK
  10. RED YEAST RICE [Concomitant]
     Dosage: UNK

REACTIONS (3)
  - BURSITIS [None]
  - OSTEOPENIA [None]
  - WEIGHT DECREASED [None]
